FAERS Safety Report 4670028-5 (Version None)
Quarter: 2005Q2

REPORT INFORMATION
  Report Type: 
  Country: None (occurrence: None)
  Receive Date: 20050520
  Receipt Date: 20050509
  Transmission Date: 20051028
  Serious: Yes (Hospitalization)
  Sender: FDA-Public Use
  Company Number: 2005BI007249

PATIENT
  Age: 34 Year
  Sex: Female

DRUGS (16)
  1. AVONEX [Suspect]
     Indication: MULTIPLE SCLEROSIS
     Dosage: IM
     Route: 030
     Dates: start: 20040301
  2. AVONEX [Suspect]
     Indication: MULTIPLE SCLEROSIS
     Dosage: 30 UG; QW; IM
     Route: 030
  3. AMBIEN [Concomitant]
  4. TRAZODONE [Concomitant]
  5. METHOCARBAMOL [Concomitant]
  6. SYNTHROID [Concomitant]
  7. NEURONTIN [Concomitant]
  8. LEXAPRO [Concomitant]
  9. BUSPAR [Concomitant]
  10. PROTONIX [Concomitant]
  11. BEXTRA [Concomitant]
  12. KLONOPIN [Concomitant]
  13. LIDODERM [Concomitant]
  14. NASCOBAL [Concomitant]
  15. ALEVE [Concomitant]
  16. IMITREX [Concomitant]

REACTIONS (5)
  - DEPRESSION [None]
  - GASTROENTERITIS [None]
  - MIGRAINE [None]
  - MULTIPLE SCLEROSIS [None]
  - OPTIC NEURITIS [None]
